FAERS Safety Report 8137304-5 (Version None)
Quarter: 2012Q1

REPORT INFORMATION
  Report Type: 
  Country: None (occurrence: None)
  Receive Date: 20120210
  Receipt Date: 20120130
  Transmission Date: 20120608
  Serious: Yes (Hospitalization, Other)
  Sender: FDA-Public Use
  Company Number: NSR_00330_2011

PATIENT
  Age: 23 Year
  Sex: Female

DRUGS (3)
  1. BACLOFEN [Suspect]
     Indication: PRODUCT USED FOR UNKNOWN INDICATION
     Dosage: (DF)
  2. ETHANOL (ETHANOL) [Suspect]
     Indication: PRODUCT USED FOR UNKNOWN INDICATION
     Dosage: (DF)
  3. LAMOTRIGINE [Suspect]
     Indication: PRODUCT USED FOR UNKNOWN INDICATION
     Dosage: (DF [(APPROX.100-200),MOST LIKELY RANGED FROM 10 TO 20 G])

REACTIONS (28)
  - COMA [None]
  - RESPIRATORY DEPRESSION [None]
  - RESPIRATORY FAILURE [None]
  - PULSE ABSENT [None]
  - ATAXIA [None]
  - SPEECH DISORDER [None]
  - CHOKING [None]
  - HYPONATRAEMIA [None]
  - HYPERCAPNIA [None]
  - VENTRICULAR ARRHYTHMIA [None]
  - VOMITING [None]
  - POISONING [None]
  - EPILEPSY [None]
  - ATRIOVENTRICULAR BLOCK [None]
  - BLOOD GLUCOSE INCREASED [None]
  - ENCEPHALOPATHY [None]
  - VENTRICULAR FIBRILLATION [None]
  - RHABDOMYOLYSIS [None]
  - AREFLEXIA [None]
  - HAEMOGLOBIN DECREASED [None]
  - RED BLOOD CELL COUNT DECREASED [None]
  - ELECTROCARDIOGRAM QT PROLONGED [None]
  - SUICIDE ATTEMPT [None]
  - SHOCK [None]
  - HYPOKALAEMIA [None]
  - CONVULSION [None]
  - BALANCE DISORDER [None]
  - MEMORY IMPAIRMENT [None]
